FAERS Safety Report 6512092-4 (Version None)
Quarter: 2009Q4

REPORT INFORMATION
  Report Type: 
  Country: None (occurrence: None)
  Receive Date: 20091217
  Receipt Date: 20091211
  Transmission Date: 20100525
  Serious: Yes (Hospitalization)
  Sender: FDA-Public Use
  Company Number: WAES 0911USA02405

PATIENT
  Age: 76 Year
  Sex: Male
  Weight: 81.6475 kg

DRUGS (3)
  1. CAP VORINOSTAT UNK [Suspect]
     Indication: ACUTE MYELOID LEUKAEMIA
     Dosage: PO
     Route: 048
     Dates: start: 20091027, end: 20091104
  2. CAP VORINOSTAT UNK [Suspect]
     Indication: ACUTE MYELOID LEUKAEMIA
     Dosage: PO
     Route: 048
     Dates: start: 20091110, end: 20091118
  3. MYLOTARG [Suspect]
     Indication: ACUTE MYELOID LEUKAEMIA

REACTIONS (4)
  - FEBRILE NEUTROPENIA [None]
  - PETECHIAE [None]
  - POST PROCEDURAL HAEMORRHAGE [None]
  - RESPIRATORY RATE INCREASED [None]
